FAERS Safety Report 21795614 (Version 2)
Quarter: 2023Q1

REPORT INFORMATION
  Report Type: Report from Study
  Country: EG (occurrence: EG)
  Receive Date: 20221229
  Receipt Date: 20230109
  Transmission Date: 20230418
  Serious: Yes (Other)
  Sender: FDA-Public Use
  Company Number: EG-002147023-NVSC2022EG297949

PATIENT
  Sex: Female

DRUGS (1)
  1. GLIVEC [Suspect]
     Active Substance: IMATINIB MESYLATE
     Indication: Chronic myeloid leukaemia
     Dosage: 400 MG, QD
     Route: 048
     Dates: start: 2012

REACTIONS (27)
  - Vitamin D decreased [Unknown]
  - Blood calcium decreased [Not Recovered/Not Resolved]
  - Cardiac disorder [Not Recovered/Not Resolved]
  - Blood magnesium decreased [Not Recovered/Not Resolved]
  - Blood viscosity decreased [Not Recovered/Not Resolved]
  - Menometrorrhagia [Not Recovered/Not Resolved]
  - Cytogenetic analysis abnormal [Recovering/Resolving]
  - Procedural haemorrhage [Recovered/Resolved]
  - Fatigue [Not Recovered/Not Resolved]
  - Dizziness [Not Recovered/Not Resolved]
  - Alopecia [Not Recovered/Not Resolved]
  - Anaemia [Recovering/Resolving]
  - Rash [Recovered/Resolved]
  - White blood cell count decreased [Recovering/Resolving]
  - Decreased immune responsiveness [Recovering/Resolving]
  - Asthma [Not Recovered/Not Resolved]
  - Dyspnoea [Not Recovered/Not Resolved]
  - Insomnia [Not Recovered/Not Resolved]
  - Cough [Not Recovered/Not Resolved]
  - Oropharyngeal pain [Recovered/Resolved]
  - Feeling abnormal [Not Recovered/Not Resolved]
  - Product taste abnormal [Not Recovered/Not Resolved]
  - Pyrexia [Recovering/Resolving]
  - Nasopharyngitis [Recovering/Resolving]
  - Product dose omission issue [Unknown]
  - Normal newborn [Unknown]
  - Maternal exposure during pregnancy [Unknown]

NARRATIVE: CASE EVENT DATE: 20120101
